FAERS Safety Report 11217737 (Version 1)
Quarter: 2015Q2

REPORT INFORMATION
  Report Type: Spontaneous
  Country: None (occurrence: None)
  Receive Date: 20150623
  Receipt Date: 20150623
  Transmission Date: 20150821
  Serious: Yes (Other)
  Sender: FDA-Public Use
  Company Number: 54973  AE # 1615

PATIENT
  Age: 37 Year
  Sex: Male

DRUGS (2)
  1. CALMS FORTE 4 KIDS [Suspect]
     Active Substance: HOMEOPATHICS
     Indication: TENSION
     Route: 048
  2. CALMS FORTE 4 KIDS [Suspect]
     Active Substance: HOMEOPATHICS
     Indication: INSOMNIA
     Route: 048

REACTIONS (5)
  - Confusional state [None]
  - Road traffic accident [None]
  - Somnambulism [None]
  - Abnormal sleep-related event [None]
  - Memory impairment [None]

NARRATIVE: CASE EVENT DATE: 20150609
